FAERS Safety Report 8181380-0 (Version None)
Quarter: 2012Q1

REPORT INFORMATION
  Report Type: 
  Country: None (occurrence: None)
  Receive Date: 20120302
  Receipt Date: 20120223
  Transmission Date: 20120608
  Serious: Yes (Hospitalization)
  Sender: FDA-Public Use
  Company Number: US-BAYER-2011-058715

PATIENT
  Age: 24 Year
  Sex: Female
  Weight: 56.689 kg

DRUGS (9)
  1. YAZ [Suspect]
     Indication: CONTRACEPTION
     Dosage: 1 UNK, UNK
     Route: 048
     Dates: start: 20080108, end: 20090812
  2. NAPROXEN [Concomitant]
     Indication: PLEURISY
     Dosage: UNK
     Dates: start: 20090701
  3. SULFAMETHOXAZOLE AND TRIMETHOPRIM [Concomitant]
     Indication: ACNE
     Dosage: UNK
     Dates: start: 20060320, end: 20091216
  4. IBUPROFEN TABLETS [Concomitant]
     Dosage: UNK
     Dates: start: 20090701
  5. YAZ [Suspect]
     Indication: ACNE
  6. SPIRONOLACTONE [Concomitant]
     Indication: ACNE
     Dosage: UNK
     Dates: start: 20060320, end: 20090801
  7. PREDNISONE TAB [Concomitant]
     Indication: PLEURISY
     Dosage: UNK
     Dates: start: 20090713, end: 20090725
  8. ALDOSTERONE ANTAGONISTS [Concomitant]
     Indication: ACNE
     Dosage: UNK
     Dates: start: 20060320, end: 20091216
  9. VICODIN [Concomitant]
     Indication: PLEURISY
     Dosage: UNK
     Dates: start: 20090713, end: 20090812

REACTIONS (9)
  - DYSPNOEA [None]
  - EMOTIONAL DISTRESS [None]
  - NAUSEA [None]
  - ANXIETY [None]
  - PULMONARY EMBOLISM [None]
  - INJURY [None]
  - PAIN [None]
  - CHEST PAIN [None]
  - MUSCULOSKELETAL CHEST PAIN [None]
